FAERS Safety Report 9016387 (Version 1)
Quarter: 2013Q1

REPORT INFORMATION
  Report Type: Spontaneous
  Country: CZ (occurrence: CZ)
  Receive Date: 20130116
  Receipt Date: 20130116
  Transmission Date: 20140127
  Serious: Yes (Hospitalization, Other)
  Sender: FDA-Public Use
  Company Number: CZ-ROCHE-1179433

PATIENT
  Age: 2 Year
  Sex: Female
  Weight: 11 kg

DRUGS (4)
  1. ROACTEMRA [Suspect]
     Indication: JUVENILE IDIOPATHIC ARTHRITIS
     Dosage: 4 DOSAGES IN ALL
     Route: 042
     Dates: start: 20100701, end: 20100812
  2. SOLU-MEDROL [Concomitant]
     Indication: PREMEDICATION
     Dosage: BEFORE TOCILIZUMAB APPLICATION
     Route: 065
     Dates: end: 20100812
  3. METHOXY POLYETHYLENE GLYCOL-EPOETIN BETA [Concomitant]
     Indication: JUVENILE IDIOPATHIC ARTHRITIS
     Route: 058
     Dates: start: 20100713, end: 20100813
  4. MEDROL [Concomitant]
     Indication: JUVENILE IDIOPATHIC ARTHRITIS
     Route: 048
     Dates: start: 20100615, end: 20100813

REACTIONS (7)
  - Tachycardia [Recovered/Resolved]
  - Chills [Recovered/Resolved]
  - Cyanosis [Recovered/Resolved]
  - Pyrexia [Recovered/Resolved]
  - Pallor [Recovered/Resolved]
  - Drug hypersensitivity [Recovered/Resolved]
  - Tachypnoea [Recovered/Resolved]
